FAERS Safety Report 12167316 (Version 1)
Quarter: 2016Q1

REPORT INFORMATION
  Report Type: Spontaneous
  Country: US (occurrence: US)
  Receive Date: 20160310
  Receipt Date: 20160310
  Transmission Date: 20160526
  Serious: No
  Sender: FDA-Public Use
  Company Number: US-BAYER-2016-047326

PATIENT
  Age: 78 Year
  Sex: Female
  Weight: 43.54 kg

DRUGS (4)
  1. ADVAIR HFA [Concomitant]
     Active Substance: FLUTICASONE PROPIONATE\SALMETEROL XINAFOATE
  2. SPIRIVA [Concomitant]
     Active Substance: TIOTROPIUM BROMIDE MONOHYDRATE
  3. ALEVE [Suspect]
     Active Substance: NAPROXEN SODIUM
     Indication: ANALGESIC THERAPY
     Dosage: TAKE 4-5 PILLS EVERY DAY
     Route: 048
     Dates: start: 2015
  4. ONE-A-DAY NOS [Concomitant]
     Active Substance: MINERALS\VITAMINS
     Dosage: TAKING THIS FOR A WHILE, MAYBE SIX

REACTIONS (3)
  - Therapeutic response unexpected [Not Recovered/Not Resolved]
  - Product use issue [None]
  - Overdose [None]

NARRATIVE: CASE EVENT DATE: 2015
